FAERS Safety Report 8213370-3 (Version None)
Quarter: 2012Q1

REPORT INFORMATION
  Report Type: 
  Country: None (occurrence: None)
  Receive Date: 20120315
  Receipt Date: 20120229
  Transmission Date: 20120608
  Serious: Yes (Hospitalization)
  Sender: FDA-Public Use
  Company Number: US-ROCHE-1028967

PATIENT
  Sex: Female
  Weight: 47.9 kg

DRUGS (13)
  1. PREVACID [Concomitant]
     Route: 048
  2. ROXICODONE [Concomitant]
     Indication: PAIN
     Dosage: EVERY 4 HOURS AS REQUIRED
  3. OXYCODONE HCL [Concomitant]
  4. DEXAMETHASONE [Concomitant]
     Indication: OEDEMA
     Route: 048
  5. DEXAMETHASONE [Concomitant]
     Dosage: ONE 1 MG IN MORNING AND 2 MG IN THE NIGHT.
  6. KYTRIL [Concomitant]
  7. KEPPRA [Concomitant]
     Route: 048
  8. VEMURAFENIB [Suspect]
     Indication: METASTATIC MALIGNANT MELANOMA
     Dates: start: 20110204
  9. VALIUM [Concomitant]
     Route: 048
  10. ELMARINE [Concomitant]
  11. VEMURAFENIB [Suspect]
     Route: 065
  12. LEXAPRO [Concomitant]
     Dosage: ONE TABLET
     Route: 048
  13. IPILIMUMAB [Concomitant]

REACTIONS (2)
  - TUMOUR HAEMORRHAGE [None]
  - HYPERKERATOSIS [None]
